FAERS Safety Report 20567622 (Version 1)
Quarter: 2022Q1

REPORT INFORMATION
  Report Type: Spontaneous
  Country: US (occurrence: US)
  Receive Date: 20220308
  Receipt Date: 20220308
  Transmission Date: 20220424
  Serious: Yes (Hospitalization)
  Sender: FDA-Public Use
  Company Number: US-PFIZER INC-202200321895

PATIENT
  Age: 52 Year
  Sex: Female
  Weight: 53.07 kg

DRUGS (2)
  1. CIPROFLOXACIN [Interacting]
     Active Substance: CIPROFLOXACIN
     Indication: Urinary tract infection
     Dosage: UNK, 2X/DAY, (250 TWICE A DAY)
     Dates: start: 202110
  2. DIAZEPAM [Interacting]
     Active Substance: DIAZEPAM
     Dosage: UNK

REACTIONS (4)
  - Withdrawal syndrome [Unknown]
  - Drug interaction [Unknown]
  - Condition aggravated [Unknown]
  - Loss of personal independence in daily activities [Unknown]

NARRATIVE: CASE EVENT DATE: 20211001
